FAERS Safety Report 9688664 (Version 1)
Quarter: 2013Q4

REPORT INFORMATION
  Report Type: Spontaneous
  Country: GB (occurrence: GB)
  Receive Date: 20131114
  Receipt Date: 20131114
  Transmission Date: 20140711
  Serious: Yes (Other)
  Sender: FDA-Public Use
  Company Number: PHHY2013GB128778

PATIENT
  Sex: Male

DRUGS (1)
  1. TACROLIMUS [Suspect]

REACTIONS (2)
  - Medication error [Unknown]
  - Kidney transplant rejection [Unknown]
